FAERS Safety Report 4956811-7 (Version None)
Quarter: 2006Q1

REPORT INFORMATION
  Report Type: 
  Country: None (occurrence: None)
  Receive Date: 20060323
  Receipt Date: 20060309
  Transmission Date: 20060701
  Serious: Yes (Hospitalization)
  Sender: FDA-Public Use
  Company Number: 2006P1000225

PATIENT
  Sex: Female

DRUGS (5)
  1. NICARDIPINE HYDROCHLORIDE [Suspect]
     Indication: BLOOD PRESSURE INCREASED
  2. METHYLDOPA [Concomitant]
  3. METOPROLOL [Concomitant]
  4. MAGNESIUM SULFATE [Concomitant]
  5. LABETALOL HCL [Concomitant]

REACTIONS (9)
  - DECREASED APPETITE [None]
  - DIZZINESS [None]
  - DRY MOUTH [None]
  - FATIGUE [None]
  - FEELING OF BODY TEMPERATURE CHANGE [None]
  - INTRA-UTERINE DEATH [None]
  - MYALGIA [None]
  - TACHYCARDIA [None]
  - THROMBOPHLEBITIS [None]
